FAERS Safety Report 8925860 (Version 1)
Quarter: 2012Q4

REPORT INFORMATION
  Report Type: 
  Country: HR (occurrence: HR)
  Receive Date: 20121126
  Receipt Date: 20121126
  Transmission Date: 20130627
  Serious: Yes (Other)
  Sender: FDA-Public Use
  Company Number: HR-ASTRAZENECA-2012SE86880

PATIENT
  Age: 17166 Day
  Sex: Female
  Weight: 68 kg

DRUGS (4)
  1. CRESTOR [Suspect]
     Indication: HYPERLIPIDAEMIA
     Route: 048
     Dates: start: 20121001, end: 20121030
  2. LETROX [Concomitant]
     Indication: HYPOTHYROIDISM
     Route: 048
  3. NEBILET [Concomitant]
     Indication: HYPERTENSION
     Route: 048
  4. PRITOR [Concomitant]
     Indication: HYPERTENSION
     Route: 048

REACTIONS (4)
  - Hypertension [Recovered/Resolved]
  - Heart rate increased [Recovered/Resolved]
  - Erythema [Recovered/Resolved]
  - Dry skin [Recovered/Resolved]
